FAERS Safety Report 5194803-6 (Version None)
Quarter: 2006Q4

REPORT INFORMATION
  Report Type: 
  Country: None (occurrence: None)
  Receive Date: 20061229
  Receipt Date: 20061218
  Transmission Date: 20070319
  Serious: Yes (Other)
  Sender: FDA-Public Use
  Company Number: US-BRISTOL-MYERS SQUIBB COMPANY-13617006

PATIENT
  Sex: Male

DRUGS (3)
  1. SUSTIVA [Suspect]
     Dates: end: 20040201
  2. VIDEX EC [Suspect]
     Dates: end: 20040201
  3. VIREAD [Suspect]
     Dates: end: 20040201

REACTIONS (1)
  - LACTIC ACIDOSIS [None]
